FAERS Safety Report 17598827 (Version 1)
Quarter: 2020Q1

REPORT INFORMATION
  Report Type: Spontaneous
  Country: NO (occurrence: NO)
  Receive Date: 20200330
  Receipt Date: 20200330
  Transmission Date: 20200409
  Serious: Yes (Hospitalization)
  Sender: FDA-Public Use
  Company Number: NO-BAYER-2020-047816

PATIENT
  Age: 64 Year
  Sex: Female

DRUGS (1)
  1. PRIMOVIST [Suspect]
     Active Substance: GADOXETATE DISODIUM
     Indication: MAGNETIC RESONANCE IMAGING LIVER
     Dosage: 7,7 ML
     Route: 042
     Dates: start: 20191101, end: 20191101

REACTIONS (4)
  - Sensation of foreign body [Unknown]
  - Cough [Unknown]
  - Increased upper airway secretion [Unknown]
  - Nausea [Unknown]
